FAERS Safety Report 24928475 (Version 1)
Quarter: 2025Q1

REPORT INFORMATION
  Report Type: Spontaneous
  Country: US (occurrence: None)
  Receive Date: 20250204
  Receipt Date: 20250204
  Transmission Date: 20250409
  Serious: Yes (Other)
  Sender: FDA-CTU
  Company Number: None

PATIENT
  Age: 28 Year
  Sex: Female
  Weight: 101.7 kg

DRUGS (6)
  1. ZEPBOUND [Suspect]
     Active Substance: TIRZEPATIDE
     Route: 058
     Dates: start: 20250118, end: 20250124
  2. LEVOTHYROXINE [Concomitant]
     Active Substance: LEVOTHYROXINE
  3. SPIRONOLACTONE [Concomitant]
     Active Substance: SPIRONOLACTONE
  4. TRI-LO- ESTARYLLA [Concomitant]
     Active Substance: ETHINYL ESTRADIOL\NORGESTIMATE
  5. FOLIC ACID [Concomitant]
     Active Substance: FOLIC ACID
  6. vit. D2 [Concomitant]

REACTIONS (4)
  - Sensitive skin [None]
  - Pain [None]
  - Hypersensitivity [None]
  - Pain in extremity [None]

NARRATIVE: CASE EVENT DATE: 20250126
